FAERS Safety Report 14123672 (Version 2)
Quarter: 2017Q4

REPORT INFORMATION
  Report Type: Report from Study
  Country: US (occurrence: US)
  Receive Date: 20171025
  Receipt Date: 20171025
  Transmission Date: 20180321
  Serious: No
  Sender: FDA-Public Use
  Company Number: PHEH2017US034334

PATIENT
  Sex: Female
  Weight: 36.2 kg

DRUGS (1)
  1. OMNITROPE [Suspect]
     Active Substance: SOMATROPIN
     Indication: HYPOPITUITARISM
     Dosage: 0.8 MG, QD (7 DAYS/WEEK)
     Route: 058
     Dates: start: 201708

REACTIONS (1)
  - Device malfunction [Not Recovered/Not Resolved]
